FAERS Safety Report 18101218 (Version 1)
Quarter: 2020Q3

REPORT INFORMATION
  Report Type: Spontaneous
  Country: US (occurrence: US)
  Receive Date: 20200801
  Receipt Date: 20200801
  Transmission Date: 20201103
  Serious: Yes (Other)
  Sender: FDA-Public Use
  Company Number: NVSC2020US214583

PATIENT
  Age: 64 Year
  Sex: Male

DRUGS (1)
  1. DECITABINE. [Suspect]
     Active Substance: DECITABINE
     Indication: ACUTE MYELOID LEUKAEMIA
     Dosage: UNK (2 CYCLES)
     Route: 065

REACTIONS (3)
  - Cytopenia [Unknown]
  - Infection [Unknown]
  - Product use in unapproved indication [Unknown]
